FAERS Safety Report 9727178 (Version 1)
Quarter: 2013Q4

REPORT INFORMATION
  Report Type: Spontaneous
  Country: US (occurrence: US)
  Receive Date: 20131203
  Receipt Date: 20131203
  Transmission Date: 20140711
  Serious: No
  Sender: FDA-Public Use
  Company Number: US-BRISTOL-MYERS SQUIBB COMPANY-19470525

PATIENT
  Sex: Male

DRUGS (3)
  1. KOMBOGLYZE [Suspect]
  2. SAXAGLIPTIN [Suspect]
  3. VICTOZA [Suspect]

REACTIONS (4)
  - Vomiting [Recovered/Resolved]
  - Nausea [Unknown]
  - Eructation [Unknown]
  - Blood glucose decreased [Unknown]
